FAERS Safety Report 9555635 (Version 1)
Quarter: 2013Q3

REPORT INFORMATION
  Report Type: Spontaneous
  Country: US (occurrence: None)
  Receive Date: 20130726
  Receipt Date: 20130726
  Transmission Date: 20140515
  Serious: Yes (Hospitalization)
  Sender: FDA-Public Use
  Company Number: UTC-021540

PATIENT
  Age: 58 Year
  Sex: Female
  Weight: 40.5 kg

DRUGS (3)
  1. REMODULIN [Suspect]
     Indication: COR PULMONALE CHRONIC
     Dosage: 47.52 UG/KG (0.033 UG/KG, 1 IN 1 MIN) ,  INTRAVENOUS DRIP
     Route: 041
     Dates: start: 20081114
  2. REVATIO (SILDENAFIL CITRATE) (UNKNOWN) (SILDENAFIL) [Concomitant]
  3. TRACLEER (BOSENTAN) [Concomitant]

REACTIONS (2)
  - Cerebrovascular accident [None]
  - Headache [None]
